FAERS Safety Report 8974795 (Version 1)
Quarter: 2012Q4

REPORT INFORMATION
  Report Type: 
  Country: US (occurrence: US)
  Receive Date: 20121219
  Receipt Date: 20121219
  Transmission Date: 20130627
  Serious: No
  Sender: FDA-Public Use
  Company Number: US-AMGEN-USASP2012054897

PATIENT
  Age: 52 Year
  Sex: Female

DRUGS (1)
  1. PROLIA [Suspect]
     Indication: OSTEOPOROSIS POSTMENOPAUSAL
     Dosage: 60 mg, UNK
     Dates: start: 20120803

REACTIONS (10)
  - Rash pruritic [Not Recovered/Not Resolved]
  - Injection site rash [Not Recovered/Not Resolved]
  - Injection site pruritus [Not Recovered/Not Resolved]
  - Rash papular [Not Recovered/Not Resolved]
  - Headache [Not Recovered/Not Resolved]
  - Malaise [Not Recovered/Not Resolved]
  - Abdominal pain upper [Recovered/Resolved]
  - Oropharyngeal pain [Not Recovered/Not Resolved]
  - Dry skin [Not Recovered/Not Resolved]
  - Urticaria [Not Recovered/Not Resolved]
